FAERS Safety Report 11376282 (Version 2)
Quarter: 2015Q3

REPORT INFORMATION
  Report Type: Spontaneous
  Country: JP (occurrence: JP)
  Receive Date: 20150813
  Receipt Date: 20150924
  Transmission Date: 20151125
  Serious: Yes (Hospitalization, Other)
  Sender: FDA-Public Use
  Company Number: JP-PFIZER INC-2015266803

PATIENT
  Age: 34 Year
  Sex: Male
  Weight: 55 kg

DRUGS (9)
  1. BENEFIX [Suspect]
     Active Substance: COAGULATION FACTOR IX RECOMBINANT HUMAN\ISOPROPYL ALCOHOL
     Dosage: 9000 IU/25 ML, 24 HOURS CONTINUOUS INTRAVENOUS INFUSION AFTER SURGERY
     Route: 041
     Dates: start: 20150730, end: 20150731
  2. BENEFIX [Suspect]
     Active Substance: COAGULATION FACTOR IX RECOMBINANT HUMAN\ISOPROPYL ALCOHOL
     Dosage: 6000 IU, UNK
     Route: 040
     Dates: start: 20150814, end: 20150816
  3. LOXONIN [Concomitant]
     Active Substance: LOXOPROFEN SODIUM
     Indication: PROCEDURAL PAIN
     Dosage: 60 MG, 3X/DAY
     Route: 048
     Dates: start: 20150731, end: 20150802
  4. BENEFIX [Suspect]
     Active Substance: COAGULATION FACTOR IX RECOMBINANT HUMAN\ISOPROPYL ALCOHOL
     Dosage: 9000 IU/25 ML, 24 HOURS CONTINUOUS INTRAVENOUS INFUSION
     Route: 041
     Dates: start: 20150803, end: 20150807
  5. FLOMOX /01418603/ [Concomitant]
     Indication: INFECTION PROPHYLAXIS
     Dosage: 100 MG, 3X/DAY
     Route: 048
     Dates: start: 20150731, end: 20150802
  6. BENEFIX [Suspect]
     Active Substance: COAGULATION FACTOR IX RECOMBINANT HUMAN\ISOPROPYL ALCOHOL
     Dosage: 9000 IU/25 ML, 24 HOURS CONTINUOUS INTRAVENOUS INFUSION
     Route: 041
     Dates: start: 20150814, end: 20150816
  7. REMICADE [Concomitant]
     Active Substance: INFLIXIMAB
     Indication: CROHN^S DISEASE
     Dosage: 600 MG, 1X/DAY
     Dates: start: 20150731, end: 20150731
  8. BENEFIX [Suspect]
     Active Substance: COAGULATION FACTOR IX RECOMBINANT HUMAN\ISOPROPYL ALCOHOL
     Dosage: 6000 IU, UNK
     Route: 040
     Dates: start: 20150803, end: 20150807
  9. BENEFIX [Suspect]
     Active Substance: COAGULATION FACTOR IX RECOMBINANT HUMAN\ISOPROPYL ALCOHOL
     Indication: FACTOR IX DEFICIENCY
     Dosage: 6000 IU, BEFORE SURGERY
     Route: 040
     Dates: start: 20150730, end: 20150731

REACTIONS (2)
  - Haemorrhage [Recovered/Resolved]
  - Injection site vasculitis [Recovered/Resolved]

NARRATIVE: CASE EVENT DATE: 20150802
